FAERS Safety Report 14480443 (Version 1)
Quarter: 2018Q1

REPORT INFORMATION
  Report Type: Spontaneous
  Country: US (occurrence: US)
  Receive Date: 20180201
  Receipt Date: 20180201
  Transmission Date: 20180509
  Serious: Yes (Other)
  Sender: FDA-Public Use
  Company Number: None

PATIENT
  Sex: Female
  Weight: 67.5 kg

DRUGS (4)
  1. VITAMIN D3 [Concomitant]
     Active Substance: CHOLECALCIFEROL
  2. REMICADE [Suspect]
     Active Substance: INFLIXIMAB
     Indication: CROHN^S DISEASE
     Dosage: ?          QUANTITY:5 MILLIGRAMS;OTHER FREQUENCY:EVERY 8 WEEKS;?
     Route: 042
     Dates: start: 20170320, end: 20180120
  3. STELARA [Concomitant]
     Active Substance: USTEKINUMAB
  4. VITAMIN B12 [Concomitant]
     Active Substance: CYANOCOBALAMIN

REACTIONS (7)
  - Psoriasis [None]
  - Skin exfoliation [None]
  - Secretion discharge [None]
  - Rash [None]
  - Vulvovaginal rash [None]
  - Rash erythematous [None]
  - Rash pruritic [None]

NARRATIVE: CASE EVENT DATE: 20171008
